FAERS Safety Report 7054055 (Version 2)
Quarter: 2012Q4

REPORT INFORMATION
  Report Type: 
  Country: CA (occurrence: CA)
  Receive Date: 20090717
  Receipt Date: 20121102
  Transmission Date: 20130627
  Serious: Yes (Other)
  Sender: FDA-Public Use
  Company Number: PHMT2007CA01648

PATIENT
  Sex: Female

DRUGS (2)
  1. SANDOSTATIN LAR [Suspect]
     Dosage: 10 mg,every 4 weeks
     Route: 030
     Dates: start: 20060530
  2. ATIVAN [Concomitant]

REACTIONS (3)
  - Depressed mood [Unknown]
  - Insulin-like growth factor decreased [Unknown]
  - Fatigue [Unknown]
